FAERS Safety Report 22235163 (Version 1)
Quarter: 2023Q2

REPORT INFORMATION
  Report Type: Spontaneous
  Country: US (occurrence: US)
  Receive Date: 20230420
  Receipt Date: 20230420
  Transmission Date: 20230722
  Serious: Yes (Hospitalization)
  Sender: FDA-Public Use
  Company Number: US-MYLANLABS-2023M1041348

PATIENT
  Age: 74 Year
  Sex: Male

DRUGS (30)
  1. GABAPENTIN [Suspect]
     Active Substance: GABAPENTIN
     Indication: Neuralgia
     Dosage: UNK
     Route: 065
  2. GABAPENTIN [Suspect]
     Active Substance: GABAPENTIN
     Indication: Post herpetic neuralgia
  3. GABAPENTIN [Suspect]
     Active Substance: GABAPENTIN
     Indication: Neuralgia
     Dosage: UNK, CREAM
     Route: 061
  4. GABAPENTIN [Suspect]
     Active Substance: GABAPENTIN
     Indication: Post herpetic neuralgia
  5. ACETAMINOPHEN [Suspect]
     Active Substance: ACETAMINOPHEN
     Indication: Neuralgia
     Dosage: UNK
     Route: 065
  6. ACETAMINOPHEN [Suspect]
     Active Substance: ACETAMINOPHEN
     Indication: Post herpetic neuralgia
  7. DICLOFENAC [Suspect]
     Active Substance: DICLOFENAC
     Indication: Neuralgia
     Dosage: UNK, CREAM
     Route: 061
  8. DICLOFENAC [Suspect]
     Active Substance: DICLOFENAC
     Indication: Post herpetic neuralgia
  9. CLONIDINE [Suspect]
     Active Substance: CLONIDINE
     Indication: Neuralgia
     Dosage: UNK, CREAM
     Route: 061
  10. CLONIDINE [Suspect]
     Active Substance: CLONIDINE
     Indication: Post herpetic neuralgia
  11. LIDOCAINE [Suspect]
     Active Substance: LIDOCAINE
     Indication: Neuralgia
     Dosage: UNK, CREAM
     Route: 061
  12. LIDOCAINE [Suspect]
     Active Substance: LIDOCAINE
     Indication: Post herpetic neuralgia
  13. NORTRIPTYLINE [Suspect]
     Active Substance: NORTRIPTYLINE
     Indication: Neuralgia
     Dosage: UNK
     Route: 065
  14. NORTRIPTYLINE [Suspect]
     Active Substance: NORTRIPTYLINE
     Indication: Post herpetic neuralgia
  15. PREGABALIN [Suspect]
     Active Substance: PREGABALIN
     Indication: Neuralgia
     Dosage: UNK
     Route: 065
  16. PREGABALIN [Suspect]
     Active Substance: PREGABALIN
     Indication: Post herpetic neuralgia
  17. DULOXETINE [Suspect]
     Active Substance: DULOXETINE
     Indication: Neuralgia
     Dosage: UNK
     Route: 065
  18. DULOXETINE [Suspect]
     Active Substance: DULOXETINE
     Indication: Post herpetic neuralgia
  19. LACOSAMIDE [Suspect]
     Active Substance: LACOSAMIDE
     Indication: Neuralgia
     Dosage: UNK
     Route: 065
  20. LACOSAMIDE [Suspect]
     Active Substance: LACOSAMIDE
     Indication: Post herpetic neuralgia
  21. CANNABIDIOL [Suspect]
     Active Substance: CANNABIDIOL
     Indication: Neuralgia
     Dosage: UNK
     Route: 061
  22. CANNABIDIOL [Suspect]
     Active Substance: CANNABIDIOL
     Indication: Post herpetic neuralgia
  23. BUPIVACAINE [Suspect]
     Active Substance: BUPIVACAINE
     Indication: Neuralgia
     Dosage: UNK
     Route: 061
  24. BUPIVACAINE [Suspect]
     Active Substance: BUPIVACAINE
     Indication: Post herpetic neuralgia
  25. KETAMINE [Suspect]
     Active Substance: KETAMINE
     Indication: Neuralgia
     Dosage: UNK
     Route: 045
  26. KETAMINE [Suspect]
     Active Substance: KETAMINE
     Indication: Post herpetic neuralgia
  27. CARBAMAZEPINE [Suspect]
     Active Substance: CARBAMAZEPINE
     Indication: Neuralgia
     Dosage: UNK
     Route: 065
  28. CARBAMAZEPINE [Suspect]
     Active Substance: CARBAMAZEPINE
     Indication: Post herpetic neuralgia
  29. NALTREXONE [Suspect]
     Active Substance: NALTREXONE
     Indication: Neuralgia
     Dosage: UNK
     Route: 065
  30. NALTREXONE [Suspect]
     Active Substance: NALTREXONE
     Indication: Post herpetic neuralgia

REACTIONS (3)
  - Drug ineffective [Unknown]
  - Drug ineffective for unapproved indication [Unknown]
  - Off label use [Unknown]
